FAERS Safety Report 10511344 (Version 1)
Quarter: 2014Q4

REPORT INFORMATION
  Report Type: Spontaneous
  Country: US (occurrence: None)
  Receive Date: 20141009
  Receipt Date: 20141009
  Transmission Date: 20150528
  Serious: Yes (Hospitalization, Other)
  Sender: FDA-Public Use
  Company Number: None

PATIENT
  Age: 59 Year
  Sex: Female
  Weight: 138 kg

DRUGS (24)
  1. FISH OIL [Concomitant]
     Active Substance: FISH OIL
  2. ACETAMINOPHEN. [Concomitant]
     Active Substance: ACETAMINOPHEN
  3. OMEPRAZOLE. [Concomitant]
     Active Substance: OMEPRAZOLE
  4. ERTAPENEM [Suspect]
     Active Substance: ERTAPENEM
     Indication: URINARY TRACT INFECTION
     Route: 042
     Dates: start: 20140721, end: 20140818
  5. CEFTRIAXONE. [Concomitant]
     Active Substance: CEFTRIAXONE
  6. CYANOCOBALAMIN. [Concomitant]
     Active Substance: CYANOCOBALAMIN
  7. MULTIVITAMIN [Concomitant]
     Active Substance: VITAMINS
  8. ERTAPENEM [Suspect]
     Active Substance: ERTAPENEM
     Indication: ESCHERICHIA BACTERAEMIA
     Route: 042
     Dates: start: 20140721, end: 20140818
  9. CALCIUM [Concomitant]
     Active Substance: CALCIUM
  10. FLORAJEN [Concomitant]
  11. ONDANSETRON [Concomitant]
     Active Substance: ONDANSETRON
  12. PREGABALIN. [Concomitant]
     Active Substance: PREGABALIN
  13. OXYBUTYNIN [Concomitant]
     Active Substance: OXYBUTYNIN
  14. ERTAPENEM [Suspect]
     Active Substance: ERTAPENEM
     Indication: OSTEOMYELITIS
     Route: 042
     Dates: start: 20140721, end: 20140818
  15. DAPTOMYCIN. [Concomitant]
     Active Substance: DAPTOMYCIN
  16. ERGOCALCIFEROL. [Concomitant]
     Active Substance: ERGOCALCIFEROL
  17. ERTAPENEM [Concomitant]
     Active Substance: ERTAPENEM
  18. FERROUS SULFATE [Concomitant]
     Active Substance: FERROUS SULFATE\FERROUS SULFATE, DRIED
  19. OXYCONTIN [Concomitant]
     Active Substance: OXYCODONE HYDROCHLORIDE
  20. UROSTMY [Concomitant]
  21. ALOSETRON [Concomitant]
     Active Substance: ALOSETRON
  22. BACLOFEN. [Concomitant]
     Active Substance: BACLOFEN
  23. THIAMINE [Concomitant]
     Active Substance: THIAMINE
  24. ASPIRIN. [Concomitant]
     Active Substance: ASPIRIN

REACTIONS (10)
  - Blood culture positive [None]
  - Leukocytosis [None]
  - Hypophagia [None]
  - Pyrexia [None]
  - Somnolence [None]
  - Mental status changes [None]
  - Toxic encephalopathy [None]
  - Medical device complication [None]
  - Delirium [None]
  - Metabolic encephalopathy [None]

NARRATIVE: CASE EVENT DATE: 20140817
